FAERS Safety Report 6044994-X (Version None)
Quarter: 2009Q1

REPORT INFORMATION
  Report Type: 
  Country: None (occurrence: None)
  Receive Date: 20090116
  Receipt Date: 20090116
  Transmission Date: 20090719
  Serious: Yes (Other)
  Sender: FDA-Public Use
  Company Number: None

PATIENT
  Sex: Male
  Weight: 75.2971 kg

DRUGS (1)
  1. ISOSORBIDE MONONITRATE [Suspect]
     Indication: CARDIAC OPERATION
     Dosage: 30MG ONCE DAILY BY MOUTH
     Route: 048
     Dates: start: 20080122, end: 20080325

REACTIONS (2)
  - HEAD INJURY [None]
  - SYNCOPE [None]
